FAERS Safety Report 9362100 (Version 2)
Quarter: 2013Q2

REPORT INFORMATION
  Report Type: Spontaneous
  Country: US (occurrence: US)
  Receive Date: 20130621
  Receipt Date: 20130626
  Transmission Date: 20140414
  Serious: Yes (Hospitalization, Other)
  Sender: FDA-Public Use
  Company Number: US-BAXTER-2013BAX022661

PATIENT
  Age: 60 Year
  Sex: Male

DRUGS (4)
  1. DIANEAL LOW CALCIUM [Suspect]
     Indication: PERITONEAL DIALYSIS
     Route: 033
     Dates: start: 201302, end: 20130401
  2. DIANEAL LOW CALCIUM [Suspect]
     Route: 033
     Dates: start: 20130601
  3. DIANEAL LOW CALCIUM [Suspect]
     Indication: PERITONEAL DIALYSIS
     Route: 033
     Dates: start: 201302, end: 20130401
  4. DIANEAL LOW CALCIUM [Suspect]
     Route: 033
     Dates: start: 20130601, end: 20130601

REACTIONS (3)
  - Blood albumin decreased [Recovering/Resolving]
  - Hypotension [Recovering/Resolving]
  - Diabetic complication [Recovering/Resolving]
